FAERS Safety Report 10066271 (Version 3)
Quarter: 2014Q2

REPORT INFORMATION
  Report Type: Spontaneous
  Country: CN (occurrence: CN)
  Receive Date: 20140408
  Receipt Date: 20140509
  Transmission Date: 20141212
  Serious: Yes (Death)
  Sender: FDA-Public Use
  Company Number: CN-ASTELLAS-2014JP003026

PATIENT
  Age: 3 Year
  Sex: Female

DRUGS (3)
  1. PROGRAF [Suspect]
     Indication: APLASTIC ANAEMIA
     Dosage: 0.5 MG, ONCE DAILY
     Route: 048
     Dates: start: 20140318, end: 20140318
  2. ATG-FRESENIUS S [Suspect]
     Indication: APLASTIC ANAEMIA
     Route: 042
     Dates: start: 20140318, end: 20140322
  3. VANCOMYCIN [Concomitant]
     Indication: PRODUCT USED FOR UNKNOWN INDICATION
     Route: 065

REACTIONS (2)
  - Fungal infection [Fatal]
  - Off label use [Recovered/Resolved]
